FAERS Safety Report 9227128 (Version 2)
Quarter: 2013Q3

REPORT INFORMATION
  Report Type: Report from Study
  Country: CA (occurrence: CA)
  Receive Date: 20130412
  Receipt Date: 20130920
  Transmission Date: 20140515
  Serious: Yes (Other)
  Sender: FDA-Public Use
  Company Number: CA-JNJFOC-20130401909

PATIENT
  Age: 33 Year
  Sex: Male
  Weight: 138 kg

DRUGS (3)
  1. REMICADE [Suspect]
     Indication: PSORIASIS
     Dosage: DOSAGE: 6 VIALS
     Route: 042
  2. REMICADE [Suspect]
     Indication: PSORIASIS
     Dosage: THERAPY DURATION: 2 HOURS
     Route: 042
     Dates: start: 20080709
  3. LISINOPRIL [Concomitant]
     Route: 048

REACTIONS (2)
  - Crohn^s disease [Unknown]
  - Therapeutic response decreased [Unknown]
